FAERS Safety Report 6742457-7 (Version None)
Quarter: 2010Q2

REPORT INFORMATION
  Report Type: 
  Country: None (occurrence: None)
  Receive Date: 20100526
  Receipt Date: 20100518
  Transmission Date: 20101027
  Serious: Yes (Hospitalization, Other)
  Sender: FDA-Public Use
  Company Number: US-ASTRAZENECA-2010SE03461

PATIENT
  Sex: Female
  Weight: 77.6 kg

DRUGS (7)
  1. SEROQUEL [Suspect]
     Indication: BIPOLAR DISORDER
     Route: 048
     Dates: end: 20070323
  2. SEROQUEL [Suspect]
     Dosage: DAILY
     Route: 048
     Dates: start: 20090609, end: 20100127
  3. WELLBUTRIN [Concomitant]
     Indication: DEPRESSION
     Route: 048
  4. HIGH BLOOD PRESSURE MEDICATION [Concomitant]
     Indication: BLOOD PRESSURE
     Dosage: DAILY
     Route: 048
  5. HEART MEDICINE [Concomitant]
     Dosage: DAILY
     Route: 048
  6. STOMACH ACID MEDICATION [Concomitant]
  7. ALLERGY MEDICATION [Concomitant]

REACTIONS (6)
  - APHONIA [None]
  - DYSPHAGIA [None]
  - OROPHARYNGEAL PAIN [None]
  - PHARYNGEAL OEDEMA [None]
  - PHARYNGOESOPHAGEAL DIVERTICULUM [None]
  - THROAT IRRITATION [None]
